FAERS Safety Report 6446412-6 (Version None)
Quarter: 2009Q4

REPORT INFORMATION
  Report Type: 
  Country: None (occurrence: None)
  Receive Date: 20091119
  Receipt Date: 20091105
  Transmission Date: 20100525
  Serious: Yes (Hospitalization, Other)
  Sender: FDA-Public Use
  Company Number: PHHY2009ZA48877

PATIENT
  Age: 62 Year
  Sex: Male

DRUGS (8)
  1. SANDIMMUNE [Suspect]
     Indication: RENAL TRANSPLANT
     Dosage: UNK
  2. MEDROL [Suspect]
     Indication: RENAL TRANSPLANT
     Dosage: 2 MG/DAY
  3. CELLCEPT [Suspect]
     Indication: RENAL TRANSPLANT
     Dosage: 2 G/DAY
  4. ATORVASTATIN [Concomitant]
     Dosage: 20 MG, UNK
  5. METOPROLOL [Concomitant]
     Dosage: 200 MG, UNK
  6. OMEPRAZOLE [Concomitant]
     Dosage: 20 MG, UNK
  7. ALFACALCIDOL [Concomitant]
     Dosage: 0.25 UG, UNK
  8. BUMETANIDE [Concomitant]
     Dosage: 2.5 MG DAILY

REACTIONS (6)
  - COLON OPERATION [None]
  - COLOSTOMY [None]
  - INFLAMMATORY MYOFIBROBLASTIC TUMOUR [None]
  - LARGE INTESTINE PERFORATION [None]
  - MASS EXCISION [None]
  - NODULE ON EXTREMITY [None]
